FAERS Safety Report 9228386 (Version 1)
Quarter: 2013Q2

REPORT INFORMATION
  Report Type: Report from Study
  Country: US (occurrence: US)
  Receive Date: 20130412
  Receipt Date: 20130412
  Transmission Date: 20140414
  Serious: Yes (Hospitalization)
  Sender: FDA-Public Use
  Company Number: US-ROCHE-1187540

PATIENT
  Age: 50 Year
  Sex: Male
  Weight: 79.3 kg

DRUGS (10)
  1. RITUXIMAB [Suspect]
     Indication: SCLERODERMA
     Route: 042
     Dates: start: 20121113, end: 20121204
  2. RITUXIMAB [Suspect]
     Indication: GRAFT VERSUS HOST DISEASE
     Dosage: STRENGTH: 10 MG/ML
     Route: 042
     Dates: start: 20130211, end: 20130304
  3. ACYCLOVIR [Concomitant]
     Route: 065
     Dates: start: 20120130
  4. TACROLIMUS [Concomitant]
     Route: 065
     Dates: start: 20110727
  5. PREDNISONE [Concomitant]
     Route: 065
     Dates: start: 20120205
  6. FLUCONAZOLE [Concomitant]
     Route: 065
     Dates: start: 201210
  7. FLUTICASONE [Concomitant]
     Route: 065
     Dates: start: 201206
  8. LORATADINE-D [Concomitant]
     Route: 065
     Dates: start: 201209
  9. PAROXETINE [Concomitant]
  10. BACTRIM DS [Concomitant]
     Route: 065
     Dates: start: 201202

REACTIONS (5)
  - Hypoxia [Recovering/Resolving]
  - Parainfluenzae virus infection [Unknown]
  - Muscular weakness [Unknown]
  - VIIth nerve paralysis [Unknown]
  - Brain neoplasm [Unknown]
